FAERS Safety Report 8507146-7 (Version None)
Quarter: 2012Q3

REPORT INFORMATION
  Report Type: 
  Country: None (occurrence: None)
  Receive Date: 20120703
  Receipt Date: 20120625
  Transmission Date: 20120928
  Serious: Yes (Hospitalization, Other)
  Sender: FDA-Public Use
  Company Number: 2011SP032020

PATIENT
  Age: 24 Year
  Sex: Female
  Weight: 102.0593 kg

DRUGS (5)
  1. PERPHENAZINE [Suspect]
     Indication: PRODUCT USED FOR UNKNOWN INDICATION
     Dosage: 8 MG TID
     Dates: start: 20081114
  2. NUVARING [Suspect]
     Indication: CONTRACEPTION
     Dosage: VAG
     Route: 067
     Dates: start: 20100527, end: 20100728
  3. NUVARING [Suspect]
     Indication: MENORRHAGIA
     Dosage: VAG
     Route: 067
     Dates: start: 20100527, end: 20100728
  4. NUVARING [Suspect]
     Indication: CONTRACEPTION
     Dosage: VAG
     Route: 067
     Dates: start: 20050101
  5. NUVARING [Suspect]
     Indication: MENORRHAGIA
     Dosage: VAG
     Route: 067
     Dates: start: 20050101

REACTIONS (26)
  - ANXIETY [None]
  - ATELECTASIS [None]
  - MENSTRUATION IRREGULAR [None]
  - PALPITATIONS [None]
  - PULMONARY EMBOLISM [None]
  - FATIGUE [None]
  - BIPOLAR DISORDER [None]
  - MENORRHAGIA [None]
  - ROAD TRAFFIC ACCIDENT [None]
  - DRUG HYPERSENSITIVITY [None]
  - PULMONARY INFARCTION [None]
  - PLEURAL EFFUSION [None]
  - CARDIOLIPIN ANTIBODY POSITIVE [None]
  - ABDOMINAL PAIN UPPER [None]
  - INJURY [None]
  - PNEUMONIA [None]
  - POSTPARTUM DEPRESSION [None]
  - PAIN [None]
  - HAEMOGLOBIN DECREASED [None]
  - BORDERLINE PERSONALITY DISORDER [None]
  - ANTIPHOSPHOLIPID ANTIBODIES POSITIVE [None]
  - LUNG NEOPLASM [None]
  - ABORTION SPONTANEOUS [None]
  - PREGNANCY [None]
  - INCREASED TENDENCY TO BRUISE [None]
  - MATERNAL EXPOSURE DURING PREGNANCY [None]
